FAERS Safety Report 7214717-7 (Version None)
Quarter: 2011Q1

REPORT INFORMATION
  Report Type: 
  Country: None (occurrence: None)
  Receive Date: 20110107
  Receipt Date: 20091216
  Transmission Date: 20110831
  Serious: No
  Sender: FDA-Public Use
  Company Number: A0835426A

PATIENT
  Age: 77 Year
  Sex: Female

DRUGS (8)
  1. LOVAZA [Suspect]
     Dosage: 4G TWICE PER DAY
     Route: 048
     Dates: start: 20091216
  2. SYNTHROID [Concomitant]
  3. VITAMIN D [Concomitant]
  4. LOMOTIL [Concomitant]
  5. METOPROLOL [Concomitant]
  6. DIOVAN [Concomitant]
  7. LORAZEPAM [Concomitant]
  8. AMBIEN [Concomitant]

REACTIONS (2)
  - ERUCTATION [None]
  - DYSGEUSIA [None]
